FAERS Safety Report 7650373-1 (Version None)
Quarter: 2011Q3

REPORT INFORMATION
  Report Type: 
  Country: None (occurrence: None)
  Receive Date: 20110721
  Receipt Date: 20100609
  Transmission Date: 20111222
  Serious: Yes (Other)
  Sender: FDA-Public Use
  Company Number: DSU-2010-02642

PATIENT

DRUGS (2)
  1. JANUVIA (SITAGLIPTIN PHOSPHATE) (SITAGLIPTIN PHOSPHATE) [Concomitant]
  2. WELCHOL [Suspect]
     Indication: DIABETES MELLITUS
     Dosage: PER ORAL
     Route: 048

REACTIONS (2)
  - BLOOD TRIGLYCERIDES INCREASED [None]
  - PANCREATITIS [None]
